FAERS Safety Report 8352924-0 (Version None)
Quarter: 2012Q2

REPORT INFORMATION
  Report Type: 
  Country: None (occurrence: None)
  Receive Date: 20120511
  Receipt Date: 20120511
  Transmission Date: 20120825
  Serious: Yes (Death, Other)
  Sender: FDA-Public Use
  Company Number: AU-PFIZER INC-2012114640

PATIENT
  Age: 95 Year
  Sex: Male

DRUGS (1)
  1. LIPITOR [Suspect]
     Indication: PROPHYLAXIS
     Dosage: 80 MG, UNK

REACTIONS (2)
  - MYOCARDIAL INFARCTION [None]
  - DIARRHOEA [None]
